FAERS Safety Report 10581393 (Version 3)
Quarter: 2015Q3

REPORT INFORMATION
  Report Type: Spontaneous
  Country: US (occurrence: US)
  Receive Date: 20141113
  Receipt Date: 20150720
  Transmission Date: 20151125
  Serious: Yes (Life-Threatening, Hospitalization, Other)
  Sender: FDA-Public Use
  Company Number: US-BAYER-2014-167590

PATIENT
  Age: 46 Year
  Sex: Female
  Weight: 50 kg

DRUGS (2)
  1. MIRENA [Suspect]
     Active Substance: LEVONORGESTREL
     Indication: CONTRACEPTION
     Dosage: 20 MCG/24HR, CONT
     Route: 015
     Dates: start: 20110525, end: 20121212
  2. KLONOPIN [Concomitant]
     Active Substance: CLONAZEPAM
     Indication: BIPOLAR DISORDER
     Dosage: UNK
     Dates: start: 2011, end: 2012

REACTIONS (12)
  - Abdominal pain [None]
  - Depression [None]
  - Emotional distress [None]
  - Hepatic enzyme increased [None]
  - Device issue [None]
  - General physical health deterioration [None]
  - Drug dependence [None]
  - Uterine perforation [None]
  - Injury [None]
  - Anxiety [None]
  - Anhedonia [None]
  - Infection [None]

NARRATIVE: CASE EVENT DATE: 201208
